FAERS Safety Report 12139743 (Version 1)
Quarter: 2016Q1

REPORT INFORMATION
  Report Type: Spontaneous
  Country: US (occurrence: None)
  Receive Date: 20160302
  Receipt Date: 20160302
  Transmission Date: 20160526
  Serious: Yes (Other)
  Sender: FDA-Public Use
  Company Number: None

PATIENT
  Age: 61 Year
  Sex: Male
  Weight: 73 kg

DRUGS (2)
  1. PANHEMATIN [Suspect]
     Active Substance: HEMIN
     Indication: PORPHYRIA ACUTE
     Route: 042
     Dates: start: 20160201, end: 20160201
  2. PANHEMATIN [Suspect]
     Active Substance: HEMIN
     Indication: PORPHYRIA
     Route: 042
     Dates: start: 20160201, end: 20160201

REACTIONS (1)
  - Thrombocytopenia [None]

NARRATIVE: CASE EVENT DATE: 20160202
